FAERS Safety Report 22058601 (Version 1)
Quarter: 2023Q1

REPORT INFORMATION
  Report Type: Spontaneous
  Country: US (occurrence: None)
  Receive Date: 20230302
  Receipt Date: 20230302
  Transmission Date: 20230418
  Serious: Yes (Hospitalization)
  Sender: FDA-Public Use
  Company Number: None

PATIENT
  Age: 90 Year
  Sex: Female
  Weight: 70.31 kg

DRUGS (10)
  1. CAPECITABINE [Suspect]
     Active Substance: CAPECITABINE
     Indication: Breast cancer female
     Dosage: FREQUENCY : TWICE A DAY;?
     Route: 048
  2. BENICAR [Concomitant]
  3. CAL MAG ZINC + D3 [Concomitant]
  4. CARVEDILOL [Concomitant]
     Active Substance: CARVEDILOL
  5. CENTRUM SILVER [Concomitant]
  6. CIMZIA [Concomitant]
  7. CITRUCEL [Concomitant]
  8. BIOTIN [Concomitant]
  9. ONDANSETRON [Concomitant]
  10. VITAMIN C [Concomitant]

REACTIONS (2)
  - Urinary tract infection [None]
  - Alopecia [None]
